FAERS Safety Report 15832056 (Version 1)
Quarter: 2019Q1

REPORT INFORMATION
  Report Type: Spontaneous
  Country: IL (occurrence: IL)
  Receive Date: 20190116
  Receipt Date: 20190116
  Transmission Date: 20190417
  Serious: Yes (Other)
  Sender: FDA-Public Use
  Company Number: IL-SA-2019SA006317

PATIENT
  Age: 34 Year
  Sex: Female

DRUGS (4)
  1. CLOMIFENE CITRATE [Suspect]
     Active Substance: CLOMIPHENE
     Dosage: 100 MG, QD
  2. CLOMIFENE CITRATE [Suspect]
     Active Substance: CLOMIPHENE
     Dosage: 50MG, 3 TREATMENT CYCLES
  3. CLOMIFENE CITRATE [Suspect]
     Active Substance: CLOMIPHENE
     Dosage: 100 MG, TWO TREATMENT CYCLES
     Dates: start: 1979, end: 1979
  4. CLOMIFENE CITRATE [Suspect]
     Active Substance: CLOMIPHENE
     Dosage: 100 MG, 5 CONSEQUTIVE CYCLES
     Dates: start: 1971, end: 1971

REACTIONS (2)
  - Benign hydatidiform mole [Unknown]
  - Gestational trophoblastic tumour [Unknown]
